FAERS Safety Report 8561409-8 (Version None)
Quarter: 2012Q3

REPORT INFORMATION
  Report Type: 
  Country: None (occurrence: None)
  Receive Date: 20120802
  Receipt Date: 20120727
  Transmission Date: 20120928
  Serious: Yes (Hospitalization)
  Sender: FDA-Public Use
  Company Number: BR-GLAXOSMITHKLINE-A0987790A

PATIENT
  Sex: Male
  Weight: 88 kg

DRUGS (2)
  1. FLUTICASONE FUROATE [Suspect]
     Indication: UPPER RESPIRATORY TRACT INFLAMMATION
     Dosage: 165MCG PER DAY
     Route: 045
     Dates: start: 20120522, end: 20120722
  2. DIPYRONE TAB [Concomitant]
     Dosage: 40DROP PER DAY
     Route: 065
     Dates: start: 20120722

REACTIONS (3)
  - OVERDOSE [None]
  - SUPRAVENTRICULAR TACHYCARDIA [None]
  - ARRHYTHMIA [None]
